FAERS Safety Report 6881971-0 (Version None)
Quarter: 2010Q3

REPORT INFORMATION
  Report Type: 
  Country: None (occurrence: None)
  Receive Date: 20100727
  Receipt Date: 20091211
  Transmission Date: 20110219
  Serious: No
  Sender: FDA-Public Use
  Company Number: US-MYLANLABS-2009S1021451

PATIENT
  Age: 37 Year
  Sex: Female

DRUGS (9)
  1. BUSPIRONE HCL [Suspect]
     Route: 048
     Dates: start: 20071106
  2. BUSPIRONE HCL [Suspect]
     Route: 048
     Dates: start: 20071106
  3. DEPAKOTE [Concomitant]
  4. COREG [Concomitant]
  5. LISINOPRIL [Concomitant]
  6. SEROQUEL [Concomitant]
  7. SERTRALINE HYDROCHLORIDE [Concomitant]
  8. SYMBICORT [Concomitant]
  9. TOPAMAX [Concomitant]

REACTIONS (1)
  - DYSGEUSIA [None]
